FAERS Safety Report 19506877 (Version 1)
Quarter: 2021Q3

REPORT INFORMATION
  Report Type: Spontaneous
  Country: US (occurrence: US)
  Receive Date: 20210708
  Receipt Date: 20210708
  Transmission Date: 20211014
  Serious: Yes (Hospitalization)
  Sender: FDA-Public Use
  Company Number: None

PATIENT
  Age: 69 Year
  Sex: Female

DRUGS (25)
  1. MUPIROCIN OIN [Concomitant]
  2. PANTOPRAZOLE [Concomitant]
     Active Substance: PANTOPRAZOLE
  3. TIZANIDINE. [Concomitant]
     Active Substance: TIZANIDINE
  4. VYNDAMAX [Suspect]
     Active Substance: TAFAMIDIS
     Indication: AMYLOIDOSIS
     Route: 048
     Dates: start: 20210224
  5. LOSARTAN POT [Concomitant]
     Active Substance: LOSARTAN POTASSIUM
  6. TRIAMCINOLON OIN [Concomitant]
  7. AMLODIPINE [Concomitant]
     Active Substance: AMLODIPINE BESYLATE
  8. BUPROPN HCL XL [Concomitant]
  9. CLONIDINE. [Concomitant]
     Active Substance: CLONIDINE
  10. PREDNISOLONE OP [Concomitant]
  11. BANOPHEN [Concomitant]
     Active Substance: DIPHENHYDRAMINE HYDROCHLORIDE
  12. HYDROCO/APAP [Concomitant]
     Active Substance: ACETAMINOPHEN\HYDROCODONE
  13. METFORMIN [Concomitant]
     Active Substance: METFORMIN HYDROCHLORIDE
  14. ESTRADIOL. [Concomitant]
     Active Substance: ESTRADIOL
  15. IBUPROFEN. [Concomitant]
     Active Substance: IBUPROFEN
  16. LATANOROST [Concomitant]
  17. ONDANSETRON [Concomitant]
     Active Substance: ONDANSETRON
  18. ARIPIPRAZOLE. [Concomitant]
     Active Substance: ARIPIPRAZOLE
  19. PERMETHRIN CRE [Concomitant]
  20. ROSUVASTATIN. [Concomitant]
     Active Substance: ROSUVASTATIN
  21. SPIRONOLACT [Concomitant]
     Active Substance: SPIRONOLACTONE
  22. DICYCLOMINE [Concomitant]
     Active Substance: DICYCLOMINE HYDROCHLORIDE
  23. LIDOCAINE. [Concomitant]
     Active Substance: LIDOCAINE
  24. PROTONIX [Concomitant]
     Active Substance: PANTOPRAZOLE SODIUM
  25. TRAZODONE [Concomitant]
     Active Substance: TRAZODONE HYDROCHLORIDE

REACTIONS (1)
  - Therapy interrupted [None]

NARRATIVE: CASE EVENT DATE: 20210611
